FAERS Safety Report 4636518-6 (Version None)
Quarter: 2005Q2

REPORT INFORMATION
  Report Type: 
  Country: None (occurrence: None)
  Receive Date: 20050414
  Receipt Date: 20050414
  Transmission Date: 20051028
  Serious: Yes (Other)
  Sender: FDA-Public Use
  Company Number: None

PATIENT
  Age: 47 Year
  Sex: Male
  Weight: 127.0072 kg

DRUGS (4)
  1. CELEBREX [Suspect]
     Indication: BACK PAIN
     Dosage: ONE  FOUR  ORAL
     Route: 048
     Dates: start: 20020301, end: 20020531
  2. CELEBREX [Suspect]
     Indication: COMPLEX REGIONAL PAIN SYNDROME
     Dosage: ONE  FOUR  ORAL
     Route: 048
     Dates: start: 20020301, end: 20020531
  3. CELEBREX [Suspect]
     Indication: BACK PAIN
     Dosage: ONE  FOUR  ORAL
     Route: 048
     Dates: start: 20041001, end: 20041215
  4. CELEBREX [Suspect]
     Indication: COMPLEX REGIONAL PAIN SYNDROME
     Dosage: ONE  FOUR  ORAL
     Route: 048
     Dates: start: 20041001, end: 20041215

REACTIONS (1)
  - HAEMORRHAGE [None]
